FAERS Safety Report 14919830 (Version 2)
Quarter: 2020Q3

REPORT INFORMATION
  Report Type: Spontaneous
  Country: TJ (occurrence: TJ)
  Receive Date: 20180521
  Receipt Date: 20180529
  Transmission Date: 20201104
  Serious: Yes (Death, Other)
  Sender: FDA-Public Use
  Company Number: TJ-JNJFOC-20180521644

PATIENT
  Age: 57 Year
  Sex: Female
  Weight: 85 kg

DRUGS (9)
  1. CLOFAZIMINE [Suspect]
     Active Substance: CLOFAZIMINE
     Indication: TUBERCULOSIS
     Dosage: 0.3 UNITS NOT REPORTED
     Route: 048
     Dates: start: 20171128
  2. CYCLOSERIN [Suspect]
     Active Substance: CYCLOSERINE
     Indication: TUBERCULOSIS
     Dosage: 0.75 UNITS NOT REPORTED
     Route: 048
     Dates: start: 20171128
  3. LINEZOLID. [Suspect]
     Active Substance: LINEZOLID
     Indication: TUBERCULOSIS
     Dosage: 0.6 UNITS NOT REPORTED
     Route: 048
     Dates: start: 20171128
  4. PROTIONAMIDE [Suspect]
     Active Substance: PROTIONAMIDE
     Indication: TUBERCULOSIS
     Dosage: 1.0 UNITS NOT REPORTED
     Route: 048
     Dates: start: 20171128
  5. PYRAZINAMIDE. [Suspect]
     Active Substance: PYRAZINAMIDE
     Indication: TUBERCULOSIS
     Dosage: 2.0 UNITS NOT REPORTED
     Route: 048
     Dates: start: 20171128
  6. BEDAQUILINE [Suspect]
     Active Substance: BEDAQUILINE
     Indication: TUBERCULOSIS
     Dosage: 0.4 UNITS REPORTED
     Route: 048
     Dates: start: 20171128
  7. BEDAQUILINE [Suspect]
     Active Substance: BEDAQUILINE
     Indication: TUBERCULOSIS
     Route: 048
     Dates: start: 20171218
  8. CLOFAZIMINE [Suspect]
     Active Substance: CLOFAZIMINE
     Indication: TUBERCULOSIS
     Route: 048
  9. AMIKACIN. [Suspect]
     Active Substance: AMIKACIN
     Indication: TUBERCULOSIS
     Dosage: 2.0 UNITS NOT REPORTED
     Route: 048
     Dates: start: 20171128

REACTIONS (2)
  - Circulatory collapse [Fatal]
  - Haemoglobin decreased [Recovered/Resolved]

NARRATIVE: CASE EVENT DATE: 20171201
